FAERS Safety Report 17959138 (Version 8)
Quarter: 2021Q4

REPORT INFORMATION
  Report Type: Spontaneous
  Country: US (occurrence: US)
  Receive Date: 20200630
  Receipt Date: 20211125
  Transmission Date: 20220303
  Serious: No
  Sender: FDA-Public Use
  Company Number: US-GLAXOSMITHKLINE-US2020AMR114182

PATIENT
  Sex: Female

DRUGS (6)
  1. ZEJULA [Suspect]
     Active Substance: NIRAPARIB
     Indication: Ovarian cancer
     Dosage: 200 MG, QD
     Route: 048
     Dates: start: 20200608
  2. ZEJULA [Suspect]
     Active Substance: NIRAPARIB
     Dosage: 100 MG, QD
     Route: 048
     Dates: start: 2020
  3. ZEJULA [Suspect]
     Active Substance: NIRAPARIB
     Dosage: 100 MG, QD
     Route: 048
  4. ZEJULA [Suspect]
     Active Substance: NIRAPARIB
     Dosage: 100 MG, QD
     Route: 048
  5. ZEJULA [Suspect]
     Active Substance: NIRAPARIB
     Dosage: 100 MG, QD
     Route: 048
  6. ZEJULA [Suspect]
     Active Substance: NIRAPARIB
     Dosage: 100 MG, QD
     Route: 048

REACTIONS (14)
  - Platelet count decreased [Not Recovered/Not Resolved]
  - White blood cell count decreased [Not Recovered/Not Resolved]
  - Paraesthesia [Unknown]
  - Muscular weakness [Unknown]
  - Constipation [Recovered/Resolved with Sequelae]
  - Impaired healing [Recovered/Resolved with Sequelae]
  - Wound complication [Not Recovered/Not Resolved]
  - Body temperature fluctuation [Unknown]
  - Hot flush [Recovered/Resolved with Sequelae]
  - Carbohydrate antigen 125 increased [Not Recovered/Not Resolved]
  - Balance disorder [Unknown]
  - Weight increased [Unknown]
  - Paracentesis [Unknown]
  - Dysphagia [Unknown]
